FAERS Safety Report 5150664-2 (Version None)
Quarter: 2006Q4

REPORT INFORMATION
  Report Type: 
  Country: None (occurrence: None)
  Receive Date: 20061108
  Receipt Date: 20061027
  Transmission Date: 20070319
  Serious: Yes (Hospitalization)
  Sender: FDA-Public Use
  Company Number: HQWYE940231OCT06

PATIENT
  Age: 46 Year
  Sex: Male

DRUGS (8)
  1. MYLOTARG [Suspect]
     Indication: ACUTE MYELOID LEUKAEMIA
     Dosage: 9 MG/M^2 1X PER 1 DAY INTRAVENOUS DRIP
     Route: 041
     Dates: start: 20051207, end: 20051207
  2. CYTARABINE [Suspect]
     Indication: LEUKAEMIA RECURRENT
     Dosage: INTRAVENOUS
     Route: 042
     Dates: start: 20051207, end: 20051211
  3. G-CSF (GRANULOCYTE COLONY STIMULATING FACTOR, ) [Suspect]
     Indication: ACUTE MYELOID LEUKAEMIA
     Dosage: INTRAVENOUS
     Route: 042
     Dates: start: 20051206, end: 20051226
  4. FRAGMIN [Concomitant]
  5. KYTRIL [Concomitant]
  6. SOLU-MEDROL [Concomitant]
  7. NORVASC [Concomitant]
  8. URSO 250 [Concomitant]

REACTIONS (17)
  - ACTIVATED PARTIAL THROMBOPLASTIN TIME PROLONGED [None]
  - ANAEMIA [None]
  - ASPARTATE AMINOTRANSFERASE INCREASED [None]
  - BLOOD ALKALINE PHOSPHATASE INCREASED [None]
  - BLOOD LACTATE DEHYDROGENASE INCREASED [None]
  - C-REACTIVE PROTEIN INCREASED [None]
  - DISSEMINATED INTRAVASCULAR COAGULATION [None]
  - FEBRILE NEUTROPENIA [None]
  - FIBRIN DEGRADATION PRODUCTS INCREASED [None]
  - GENERAL PHYSICAL HEALTH DETERIORATION [None]
  - HERPES SIMPLEX [None]
  - INFUSION RELATED REACTION [None]
  - LEUKOPENIA [None]
  - NEUTROPENIA [None]
  - PROTHROMBIN TIME PROLONGED [None]
  - PYREXIA [None]
  - THROMBOCYTOPENIA [None]
